FAERS Safety Report 6765108-4 (Version None)
Quarter: 2010Q2

REPORT INFORMATION
  Report Type: 
  Country: None (occurrence: None)
  Receive Date: 20100609
  Receipt Date: 20100609
  Transmission Date: 20101027
  Serious: Yes (Life-Threatening, Hospitalization, Disabling)
  Sender: FDA-Public Use
  Company Number: None

PATIENT
  Sex: Male
  Weight: 102.7 kg

DRUGS (3)
  1. PRASUGREL 10MG LILLY [Suspect]
     Indication: ACUTE MYOCARDIAL INFARCTION
     Dosage: 60MG ONE TIME PO
     Route: 048
  2. PRASUGREL 10MG LILLY [Suspect]
     Indication: DEVICE OCCLUSION
     Dosage: 60MG ONE TIME PO
     Route: 048
  3. TENECTEPLASE 50MG [Suspect]
     Indication: ACUTE MYOCARDIAL INFARCTION
     Dosage: 50MG ONE TIME IV BOLUS
     Route: 040

REACTIONS (2)
  - HAEMORRHAGE INTRACRANIAL [None]
  - UNRESPONSIVE TO STIMULI [None]
